FAERS Safety Report 5639030-0 (Version None)
Quarter: 2008Q1

REPORT INFORMATION
  Report Type: 
  Country: None (occurrence: None)
  Receive Date: 20080226
  Receipt Date: 20080213
  Transmission Date: 20080703
  Serious: Yes (Hospitalization)
  Sender: FDA-Public Use
  Company Number: JP-BRISTOL-MYERS SQUIBB COMPANY-14015960

PATIENT
  Age: 59 Year
  Sex: Male

DRUGS (6)
  1. EFAVIRENZ [Suspect]
     Indication: HIV INFECTION
     Dosage: THERAPY DATE: 21JUL06-10SEP06 (800MG/D)PO(52DAYS);11SEP06-05JAN07(600MG/D)(117DAYS)PO
     Route: 048
     Dates: start: 20060721, end: 20070105
  2. EPZICOM [Concomitant]
     Dates: start: 20060515, end: 20070105
  3. KLARICID [Concomitant]
     Dates: start: 20060721, end: 20060908
  4. EBUTOL [Concomitant]
     Dates: start: 20060721, end: 20060908
  5. LEXIVA [Concomitant]
     Dates: start: 20060515, end: 20060720
  6. RIFADIN [Concomitant]
     Dates: start: 20060721, end: 20060908

REACTIONS (2)
  - DIABETES INSIPIDUS [None]
  - PNEUMONIA ASPIRATION [None]
